FAERS Safety Report 22650978 (Version 1)
Quarter: 2023Q2

REPORT INFORMATION
  Report Type: Spontaneous
  Country: US (occurrence: US)
  Receive Date: 20230628
  Receipt Date: 20230628
  Transmission Date: 20230722
  Serious: No
  Sender: FDA-Public Use
  Company Number: US-BRISTOL-MYERS SQUIBB COMPANY-2023-090796

PATIENT
  Age: 66 Year
  Sex: Male

DRUGS (2)
  1. REVLIMID [Suspect]
     Active Substance: LENALIDOMIDE
     Indication: Plasma cell myeloma in remission
     Dosage: FREQUENCY: TAKE 1 CAPSULE (5 MG TOTAL) BY MOUTH DAILY ON DAYS 1-21 EVERY 28 DAYS
     Route: 048
     Dates: start: 20230208
  2. ALLEGRA ALRG [Concomitant]
     Indication: Product used for unknown indication

REACTIONS (1)
  - Product dose omission issue [Unknown]
